FAERS Safety Report 26169989 (Version 1)
Quarter: 2025Q4

REPORT INFORMATION
  Report Type: Spontaneous
  Country: EU (occurrence: EU)
  Receive Date: 20251217
  Receipt Date: 20251217
  Transmission Date: 20260118
  Serious: Yes (Death, Other)
  Sender: PFIZER
  Company Number: EU-002147023-PHHY2015FR070961

PATIENT
  Age: 60 Year
  Sex: Male

DRUGS (9)
  1. CYTARABINE [Suspect]
     Active Substance: CYTARABINE
     Indication: Myeloproliferative neoplasm
     Dosage: 200 MG/ M2/D X 7 (INDUCTION)
  2. CYTARABINE [Suspect]
     Active Substance: CYTARABINE
     Indication: Polycythaemia vera
  3. CYTARABINE [Suspect]
     Active Substance: CYTARABINE
     Indication: Myelofibrosis
  4. IDARUBICIN HYDROCHLORIDE [Suspect]
     Active Substance: IDARUBICIN HYDROCHLORIDE
     Indication: Myeloproliferative neoplasm
     Dosage: 12 MG/M2/D X 3 (INDUCTION)
  5. IDARUBICIN HYDROCHLORIDE [Suspect]
     Active Substance: IDARUBICIN HYDROCHLORIDE
     Indication: Polycythaemia vera
  6. IDARUBICIN HYDROCHLORIDE [Suspect]
     Active Substance: IDARUBICIN HYDROCHLORIDE
     Indication: Myelofibrosis
  7. RUXOLITINIB [Suspect]
     Active Substance: RUXOLITINIB
     Indication: Myeloproliferative neoplasm
     Dosage: 10 MG X 2/D (INDUCTION)
  8. RUXOLITINIB [Suspect]
     Active Substance: RUXOLITINIB
     Indication: Polycythaemia vera
     Dosage: 10 MG X 2/D (CONSOLIDATION)
  9. RUXOLITINIB [Suspect]
     Active Substance: RUXOLITINIB
     Indication: Myelofibrosis

REACTIONS (2)
  - Bone marrow failure [Fatal]
  - Intestinal obstruction [Unknown]
